FAERS Safety Report 9093216 (Version 1)
Quarter: 2013Q1

REPORT INFORMATION
  Report Type: Report from Study
  Country: US (occurrence: US)
  Receive Date: 20130131
  Receipt Date: 20130131
  Transmission Date: 20140127
  Serious: No
  Sender: FDA-Public Use
  Company Number: US-ABBOTT-12P-163-1002834-00

PATIENT
  Age: 48 Year
  Sex: Female

DRUGS (4)
  1. HUMIRA [Suspect]
     Indication: CROHN^S DISEASE
     Dates: start: 20121008, end: 20121008
  2. HUMIRA [Suspect]
     Dates: start: 20121021, end: 20121021
  3. HUMIRA [Suspect]
  4. PREDNISONE [Concomitant]
     Indication: CROHN^S DISEASE
     Dosage: THROUGH TODAY AND TOMORROW DOWN TO 40 MG DAILY
     Route: 048

REACTIONS (1)
  - Medication error [Unknown]
